FAERS Safety Report 7624749-2 (Version None)
Quarter: 2011Q3

REPORT INFORMATION
  Report Type: 
  Country: None (occurrence: None)
  Receive Date: 20110720
  Receipt Date: 20110719
  Transmission Date: 20111222
  Serious: No
  Sender: FDA-Public Use
  Company Number: US-B.I. PHARMACEUTICALS,INC./RIDGEFIELD-2011-BP-18075BP

PATIENT
  Sex: Female

DRUGS (7)
  1. LEXAPRO [Concomitant]
     Indication: DEPRESSION
  2. LEVOTHYROXINE SODIUM [Concomitant]
     Indication: HYPOTHYROIDISM
  3. ARTHROTEC [Concomitant]
     Indication: OSTEOARTHRITIS
  4. DYAZIDE [Concomitant]
     Indication: HYPERTENSION
  5. PRADAXA [Suspect]
     Indication: ATRIAL FIBRILLATION
     Dosage: 300 MG
     Route: 048
     Dates: start: 20110301, end: 20110705
  6. DIGOXIN [Concomitant]
     Indication: ATRIAL FIBRILLATION
  7. OXYBUTYNIN [Concomitant]
     Indication: HYPERTONIC BLADDER

REACTIONS (3)
  - ABDOMINAL PAIN [None]
  - FLATULENCE [None]
  - DIARRHOEA [None]
